FAERS Safety Report 12289573 (Version 1)
Quarter: 2016Q2

REPORT INFORMATION
  Report Type: Spontaneous
  Country: FR (occurrence: FR)
  Receive Date: 20160421
  Receipt Date: 20160421
  Transmission Date: 20160815
  Serious: Yes (Hospitalization)
  Sender: FDA-Public Use
  Company Number: PHHY2016FR052492

PATIENT
  Age: 37 Year
  Sex: Female

DRUGS (1)
  1. TEGRETOL [Suspect]
     Active Substance: CARBAMAZEPINE
     Indication: BIPOLAR DISORDER
     Dosage: 200 MG, BID
     Route: 048
     Dates: start: 20160203, end: 20160303

REACTIONS (7)
  - Eosinophil count increased [Recovered/Resolved]
  - Oedema peripheral [Recovered/Resolved]
  - Blister [Unknown]
  - Hepatocellular injury [Recovered/Resolved]
  - Drug reaction with eosinophilia and systemic symptoms [Recovering/Resolving]
  - Pruritus [Recovered/Resolved]
  - Rash [Recovered/Resolved]

NARRATIVE: CASE EVENT DATE: 20160225
